FAERS Safety Report 18498698 (Version 1)
Quarter: 2020Q4

REPORT INFORMATION
  Report Type: Spontaneous
  Country: FR (occurrence: FR)
  Receive Date: 20201112
  Receipt Date: 20201112
  Transmission Date: 20210114
  Serious: Yes (Other)
  Sender: FDA-Public Use
  Company Number: FR-TEVA-2020-FR-1847420

PATIENT
  Age: 60 Year
  Sex: Female
  Weight: 68 kg

DRUGS (19)
  1. AMLODIPINE [Suspect]
     Active Substance: AMLODIPINE BESYLATE
     Indication: HYPERTENSION
     Dosage: UNIT DOSE 5MG
     Route: 048
     Dates: start: 20200902, end: 20201005
  2. CHOLURSO [Concomitant]
     Active Substance: URSODIOL
     Dosage: UNKNOWN
     Route: 048
  3. HYDROCORTISONE. [Concomitant]
     Active Substance: HYDROCORTISONE
     Dosage: UNKNOWN
     Route: 042
     Dates: start: 20200930
  4. APREPITANT. [Suspect]
     Active Substance: APREPITANT
     Indication: PROPHYLAXIS OF NAUSEA AND VOMITING
     Dosage: UNIT DOSE 80MG
     Route: 048
     Dates: start: 202009, end: 20201003
  5. ONDANSETRON [Suspect]
     Active Substance: ONDANSETRON
     Indication: PROPHYLAXIS OF NAUSEA AND VOMITING
     Dosage: UNIT DOSE 8MG
     Route: 042
     Dates: start: 202009, end: 20201004
  6. PRINCI B, COMPRIME PELLICULE [Concomitant]
     Dosage: UNKNOWN
     Route: 048
     Dates: start: 20201001, end: 20201007
  7. LOSARTAN POTASSIQUE [Concomitant]
     Active Substance: LOSARTAN POTASSIUM
     Dosage: UNKNOWN
     Route: 048
  8. LEVOTHYROXINE SODIQUE [Concomitant]
     Active Substance: LEVOTHYROXINE SODIUM
     Dosage: UNKNOWN
     Route: 048
  9. METOCLOPRAMIDE. [Suspect]
     Active Substance: METOCLOPRAMIDE
     Indication: PROPHYLAXIS OF NAUSEA AND VOMITING
     Dosage: UNIT DOSE 60MG
     Route: 042
     Dates: start: 202009, end: 20201005
  10. NEFOPAM (CHLORHYDRATE DE) [Concomitant]
     Active Substance: NEFOPAM HYDROCHLORIDE
     Dosage: UNKNOWN
     Route: 042
     Dates: start: 20201002
  11. TITANOREINE A LA LIDOCAINE 2 POUR CENT, CREME [Concomitant]
     Dosage: UNKNOWN
     Route: 054
     Dates: end: 20201003
  12. TIORFAN 100 MG, GELULE [Suspect]
     Active Substance: RACECADOTRIL
     Indication: DIARRHOEA
     Dosage: UNIT DOSE 200MG
     Route: 048
     Dates: start: 202009, end: 20201003
  13. TENOFOVIR DISOPROXIL [Concomitant]
     Active Substance: TENOFOVIR DISOPROXIL
     Dosage: UNKNOWN
     Route: 048
     Dates: start: 20200916
  14. VALACICLOVIR [Concomitant]
     Active Substance: VALACYCLOVIR HYDROCHLORIDE
     Dosage: UNKNOWN
     Route: 048
     Dates: start: 202009, end: 20201005
  15. FLUCONAZOLE. [Concomitant]
     Active Substance: FLUCONAZOLE
     Dosage: UNKNOWN
     Route: 042
     Dates: start: 20201001, end: 20201009
  16. MYCOPHENOLATE MOFETIL. [Concomitant]
     Active Substance: MYCOPHENOLATE MOFETIL
     Dosage: UNKNOWN
     Route: 048
     Dates: start: 20201001
  17. POLARAMINE [Concomitant]
     Active Substance: DEXCHLORPHENIRAMINE MALEATE
     Dosage: UNKNOWN
     Route: 042
  18. TIENAM [Suspect]
     Active Substance: CILASTATIN SODIUM\IMIPENEM
     Indication: ESCHERICHIA INFECTION
     Dosage: UNIT DOSE 3GM
     Route: 042
     Dates: start: 20201002, end: 20201003
  19. CICLOSPORINE [Concomitant]
     Active Substance: CYCLOSPORINE
     Dosage: UNKNOWN
     Route: 042
     Dates: start: 20201001

REACTIONS (2)
  - Hallucinations, mixed [Recovered/Resolved]
  - Confusional state [Recovered/Resolved]

NARRATIVE: CASE EVENT DATE: 20201003
